FAERS Safety Report 7306262-5 (Version None)
Quarter: 2011Q1

REPORT INFORMATION
  Report Type: 
  Country: None (occurrence: None)
  Receive Date: 20110222
  Receipt Date: 20110209
  Transmission Date: 20110831
  Serious: Yes (Other)
  Sender: FDA-Public Use
  Company Number: PHHY2009CA31945

PATIENT
  Sex: Male

DRUGS (1)
  1. SANDOSTATIN LAR [Suspect]
     Indication: CARCINOID TUMOUR
     Dosage: 30 MG, EVERY 4 WEEKS
     Route: 030
     Dates: start: 20090701

REACTIONS (12)
  - DEFAECATION URGENCY [None]
  - COUGH [None]
  - NEOPLASM MALIGNANT [None]
  - ARTHRALGIA [None]
  - FLUSHING [None]
  - NASOPHARYNGITIS [None]
  - ABDOMINAL DISTENSION [None]
  - BLOOD PRESSURE SYSTOLIC INCREASED [None]
  - FLANK PAIN [None]
  - ABDOMINAL PAIN LOWER [None]
  - ABDOMINAL PAIN UPPER [None]
  - ABDOMINAL DISCOMFORT [None]
